FAERS Safety Report 9551732 (Version 1)
Quarter: 2013Q3

REPORT INFORMATION
  Report Type: Spontaneous
  Country: US (occurrence: None)
  Receive Date: 20130724
  Receipt Date: 20130724
  Transmission Date: 20140515
  Serious: Yes (Hospitalization)
  Sender: FDA-Public Use
  Company Number: PHEH2013US006975

PATIENT
  Sex: Female

DRUGS (1)
  1. GLEEVEC [Suspect]
     Indication: NEOPLASM MALIGNANT
     Route: 048
     Dates: start: 20130222

REACTIONS (6)
  - Hot flush [None]
  - Constipation [None]
  - Feeling cold [None]
  - Nausea [None]
  - Vomiting [None]
  - Hypotension [None]
